FAERS Safety Report 5162671-4 (Version None)
Quarter: 2006Q4

REPORT INFORMATION
  Report Type: 
  Country: None (occurrence: None)
  Receive Date: 20061121
  Receipt Date: 20061114
  Transmission Date: 20070319
  Serious: Yes (Other)
  Sender: FDA-Public Use
  Company Number: 172116

PATIENT
  Age: 45 Year
  Sex: Female

DRUGS (1)
  1. AVONEX [Suspect]
     Indication: MULTIPLE SCLEROSIS
     Dosage: 30 UG; QW; IM
     Route: 030
     Dates: start: 20000512, end: 20051118

REACTIONS (6)
  - BREAST CANCER IN SITU [None]
  - BREAST CANCER STAGE I [None]
  - BREAST CANCER STAGE III [None]
  - BREAST MICROCALCIFICATION [None]
  - BREAST NECROSIS [None]
  - FIBROADENOMA OF BREAST [None]
